FAERS Safety Report 10042462 (Version 1)
Quarter: 2014Q1

REPORT INFORMATION
  Report Type: Spontaneous
  Country: US (occurrence: US)
  Receive Date: 20140327
  Receipt Date: 20140327
  Transmission Date: 20141002
  Serious: Yes (Other)
  Sender: FDA-Public Use
  Company Number: US-GE HEALTHCARE MEDICAL DIAGNOSTICS-OSCN-PR-1403L-0066

PATIENT
  Age: 16 Year
  Sex: Male

DRUGS (6)
  1. OMNISCAN [Suspect]
     Indication: PRODUCT USED FOR UNKNOWN INDICATION
     Dosage: DOSE NOT REPORTED
     Route: 065
  2. OMNISCAN [Suspect]
     Indication: DIAGNOSTIC PROCEDURE
  3. GADOPENTETATE DIMEGLUMINE [Suspect]
  4. GADOVERSETAMIDE [Suspect]
  5. GADOBENATE DIMEGLUMINE [Suspect]
  6. GADOTERIDOL [Suspect]

REACTIONS (1)
  - Nephrogenic systemic fibrosis [Unknown]
